FAERS Safety Report 9234977 (Version 5)
Quarter: 2014Q2

REPORT INFORMATION
  Report Type: Spontaneous
  Country: US (occurrence: US)
  Receive Date: 20130416
  Receipt Date: 20140417
  Transmission Date: 20141212
  Serious: Yes (Other)
  Sender: FDA-Public Use
  Company Number: US-UCBSA-083178

PATIENT
  Age: 50 Year
  Sex: Female
  Weight: 59.87 kg

DRUGS (4)
  1. CIMZIA [Suspect]
     Indication: CROHN^S DISEASE
     Dosage: EXPIRY DATE: ??-DEC-2015
     Dates: start: 20081024
  2. CIMZIA [Suspect]
     Indication: CROHN^S DISEASE
     Route: 058
  3. PENTASSA [Concomitant]
     Indication: CROHN^S DISEASE
     Dosage: 4 PILLS
     Route: 048
  4. LOMOTRIZINE [Concomitant]
     Route: 048

REACTIONS (5)
  - Cystitis [Not Recovered/Not Resolved]
  - Upper respiratory tract infection [Recovered/Resolved]
  - Pollakiuria [Unknown]
  - Staphylococcal infection [Recovered/Resolved]
  - Inappropriate schedule of drug administration [Recovered/Resolved]
